FAERS Safety Report 26075908 (Version 2)
Quarter: 2025Q4

REPORT INFORMATION
  Report Type: Report from Study
  Country: US (occurrence: US)
  Receive Date: 20251121
  Receipt Date: 20251215
  Transmission Date: 20260117
  Serious: Yes (Hospitalization, Other)
  Sender: JOHNSON AND JOHNSON
  Company Number: US-JNJFOC-20251155378

PATIENT
  Age: 65 Year
  Sex: Female
  Weight: 75.6 kg

DRUGS (27)
  1. CILTACABTAGENE AUTOLEUCEL [Suspect]
     Active Substance: CILTACABTAGENE AUTOLEUCEL
     Indication: Plasma cell myeloma
     Route: 042
  2. FLUDARABINE [Concomitant]
     Active Substance: FLUDARABINE PHOSPHATE
     Indication: Plasma cell myeloma
     Dates: start: 20250820, end: 20250822
  3. CYCLOPHOSPHAMIDE [Concomitant]
     Active Substance: CYCLOPHOSPHAMIDE
     Indication: Plasma cell myeloma
     Dates: start: 20250820, end: 20250822
  4. AMMONIUM LACTATE [Concomitant]
     Active Substance: AMMONIUM LACTATE
     Indication: Pruritus
     Dosage: 1 APPLICATION
     Route: 061
  5. VITAMIN D3 [Concomitant]
     Active Substance: CHOLECALCIFEROL
     Indication: Prophylaxis
     Dosage: 1 CAPSULE
     Route: 048
  6. LEXAPRO [Concomitant]
     Active Substance: ESCITALOPRAM OXALATE
     Indication: Anxiety
     Route: 048
  7. BONIVA [Concomitant]
     Active Substance: IBANDRONATE SODIUM
     Indication: Osteoarthritis
     Route: 048
  8. LOTEMAX [Concomitant]
     Active Substance: LOTEPREDNOL ETABONATE
     Indication: Product used for unknown indication
  9. SYSTANE (HYPROMELLOSE 2910 (4000 MPA.S)) [Concomitant]
     Active Substance: HYPROMELLOSE 2910 (4000 MPA.S)
     Indication: Dry eye
  10. SYSTANE (HYPROMELLOSE 2910 (4000 MPA.S)) [Concomitant]
     Active Substance: HYPROMELLOSE 2910 (4000 MPA.S)
     Indication: Keratoconus
  11. TIMOPTIC [Concomitant]
     Active Substance: TIMOLOL MALEATE
     Indication: Dry eye
  12. TIMOPTIC [Concomitant]
     Active Substance: TIMOLOL MALEATE
     Indication: Keratoconus
  13. VALTREX [Concomitant]
     Active Substance: VALACYCLOVIR HYDROCHLORIDE
     Indication: Prophylaxis
     Route: 048
     Dates: start: 20250825, end: 20251115
  14. VALTREX [Concomitant]
     Active Substance: VALACYCLOVIR HYDROCHLORIDE
     Dosage: THERAPY DATE: 15-NOV-2025
     Route: 048
  15. AMBIEN [Concomitant]
     Active Substance: ZOLPIDEM TARTRATE
     Indication: Product used for unknown indication
     Route: 048
  16. IMODIUM AD [Concomitant]
     Active Substance: LOPERAMIDE HYDROCHLORIDE
     Indication: Diarrhoea
     Route: 048
     Dates: start: 20250826
  17. PROCHLORPERAZINE EDISYLATE [Concomitant]
     Active Substance: PROCHLORPERAZINE EDISYLATE
     Indication: Nausea
     Route: 048
     Dates: start: 20250818, end: 20251111
  18. LEVAQUIN [Concomitant]
     Active Substance: LEVOFLOXACIN
     Indication: Neutrophil count decreased
     Route: 048
     Dates: start: 20250829, end: 20250908
  19. LEVAQUIN [Concomitant]
     Active Substance: LEVOFLOXACIN
     Route: 048
     Dates: start: 20250923
  20. DIFLUCAN [Concomitant]
     Active Substance: FLUCONAZOLE
     Indication: Neutrophil count decreased
     Route: 048
     Dates: start: 20250829, end: 20250908
  21. NIVESTYM [Concomitant]
     Active Substance: FILGRASTIM-AAFI
     Indication: Neutrophil count decreased
     Dosage: ONCE
     Route: 058
     Dates: start: 20250908, end: 20250908
  22. NIVESTYM [Concomitant]
     Active Substance: FILGRASTIM-AAFI
     Dosage: ONCE
     Route: 058
     Dates: start: 20250917, end: 20250917
  23. NIVESTYM [Concomitant]
     Active Substance: FILGRASTIM-AAFI
     Dosage: ONCE
     Route: 058
     Dates: start: 20250924, end: 20250924
  24. ALBUTEROL [Concomitant]
     Active Substance: ALBUTEROL
     Indication: Prophylaxis
     Dosage: ONCE
     Dates: start: 20250917, end: 20250917
  25. PENTAM [Concomitant]
     Active Substance: PENTAMIDINE ISETHIONATE
     Indication: Prophylaxis
     Dosage: ONCE
     Route: 055
     Dates: start: 20250917, end: 20250917
  26. PENTAM [Concomitant]
     Active Substance: PENTAMIDINE ISETHIONATE
     Dosage: ONCE
     Route: 055
     Dates: start: 20251124, end: 20251124
  27. BACTRIM [Concomitant]
     Active Substance: SULFAMETHOXAZOLE\TRIMETHOPRIM
     Indication: Prophylaxis
     Dosage: 800/160 MG, Q M/W/F
     Route: 048
     Dates: start: 20251015, end: 20251027

REACTIONS (4)
  - Enterocolitis infectious [Recovered/Resolved]
  - Enterovirus infection [Recovered/Resolved]
  - Rhinovirus infection [Recovered/Resolved]
  - Acute kidney injury [Recovering/Resolving]

NARRATIVE: CASE EVENT DATE: 20251107
